FAERS Safety Report 7745479-2 (Version None)
Quarter: 2011Q3

REPORT INFORMATION
  Report Type: 
  Country: None (occurrence: None)
  Receive Date: 20110908
  Receipt Date: 20110823
  Transmission Date: 20111222
  Serious: Yes (Other)
  Sender: FDA-Public Use
  Company Number: AUR-APL-2011-04846

PATIENT
  Age: 76 Year
  Sex: Male

DRUGS (5)
  1. MIRTAZAPINE [Suspect]
     Indication: PRODUCT USED FOR UNKNOWN INDICATION
     Dosage: 45 MG
  2. BENDROFLUAZIDE (ENDROFLUMETHIAZIDE) [Concomitant]
  3. EFFEXOR XR [Suspect]
     Indication: PRODUCT USED FOR UNKNOWN INDICATION
     Dosage: 75 MG
  4. LORAZEPAM [Concomitant]
  5. AMLODIPINE [Concomitant]

REACTIONS (3)
  - HEAD INJURY [None]
  - BLOOD SODIUM DECREASED [None]
  - CIRCULATORY COLLAPSE [None]
